FAERS Safety Report 8080769-8 (Version None)
Quarter: 2012Q1

REPORT INFORMATION
  Report Type: 
  Country: None (occurrence: None)
  Receive Date: 20120130
  Receipt Date: 20120125
  Transmission Date: 20120608
  Serious: Yes (Life-Threatening, Other)
  Sender: FDA-Public Use
  Company Number: PHHY2011US48205

PATIENT
  Sex: Female

DRUGS (3)
  1. EXFORGE HCT [Suspect]
     Dosage: 1 DF (320/10/25 MG), DAILY
     Route: 048
  2. EXFORGE HCT [Suspect]
  3. VENTOLIN [Concomitant]

REACTIONS (10)
  - FEELING ABNORMAL [None]
  - COUGH [None]
  - DYSPNOEA [None]
  - ABDOMINAL PAIN [None]
  - GASTRITIS [None]
  - FATIGUE [None]
  - JOINT SWELLING [None]
  - FLATULENCE [None]
  - ANXIETY [None]
  - MUSCULOSKELETAL PAIN [None]
